FAERS Safety Report 5933772-5 (Version None)
Quarter: 2008Q4

REPORT INFORMATION
  Report Type: 
  Country: None (occurrence: None)
  Receive Date: 20081024
  Receipt Date: 20081021
  Transmission Date: 20090506
  Serious: Yes (Other)
  Sender: FDA-Public Use
  Company Number: S08-USA-01633-01

PATIENT
  Age: 60 Year
  Sex: Male

DRUGS (2)
  1. THYROID TAB [Suspect]
     Indication: HYPOTHYROIDISM
     Dosage: 180 MG (180 MG, 1 IN 1 D), ORAL
     Route: 048
     Dates: end: 20000101
  2. THYROID TAB [Suspect]
     Indication: HYPOTHYROIDISM
     Dosage: 180 MG (180 MG, 1 IN 1 D), ORAL
     Route: 048
     Dates: start: 20000101, end: 20080101

REACTIONS (20)
  - ABDOMINAL DISCOMFORT [None]
  - APPENDIX DISORDER [None]
  - ARTHRALGIA [None]
  - ARTHROPATHY [None]
  - BLOOD URINE PRESENT [None]
  - DEAFNESS [None]
  - EAR INFECTION [None]
  - GALLBLADDER DISORDER [None]
  - HYPERAESTHESIA [None]
  - HYPERTENSION [None]
  - HYPOAESTHESIA [None]
  - LOSS OF EMPLOYMENT [None]
  - LYMPHADENOPATHY [None]
  - NAIL DISORDER [None]
  - NEUROPATHY PERIPHERAL [None]
  - PAIN [None]
  - PORPHYRIA [None]
  - SKIN EXFOLIATION [None]
  - SKIN HYPERTROPHY [None]
  - WEIGHT INCREASED [None]
